FAERS Safety Report 6464836 (Version 21)
Quarter: 2013Q3

REPORT INFORMATION
  Report Type: Spontaneous
  Country: US (occurrence: US)
  Receive Date: 20071113
  Receipt Date: 20130812
  Transmission Date: 20140515
  Serious: Yes (Hospitalization, Other)
  Sender: FDA-Public Use
  Company Number: PHEH2007US14474

PATIENT
  Age: 53 Year
  Sex: Female
  Weight: 102.6 kg

DRUGS (14)
  1. ZOMETA [Suspect]
     Indication: METASTASES TO BONE
     Dosage: 4 MG, QMO
     Dates: start: 20020812, end: 200410
  2. NORVASC [Suspect]
     Dosage: 5 MG, BID
  3. EPOTHILONE A [Concomitant]
     Indication: METASTATIC RENAL CELL CARCINOMA
  4. GLUTAMINE [Concomitant]
  5. OXYCODONE [Concomitant]
  6. AXID [Concomitant]
  7. KEFLEX                                  /USA/ [Concomitant]
  8. PROTONIX ^PHARMACIA^ [Concomitant]
  9. HYDROMORPHONE [Concomitant]
  10. FENTANYL [Concomitant]
  11. TYLENOL [Concomitant]
  12. BISACODYL [Concomitant]
  13. DOCUSATE SODIUM [Concomitant]
  14. ATENOLOL [Concomitant]

REACTIONS (54)
  - Osteonecrosis of jaw [Unknown]
  - Mandibular prosthesis user [Unknown]
  - Device failure [Unknown]
  - Bacterial disease carrier [Unknown]
  - Osteomyelitis [Unknown]
  - Swelling [Recovering/Resolving]
  - Discomfort [Recovering/Resolving]
  - Metastases to spine [Unknown]
  - Benign pancreatic neoplasm [Unknown]
  - Hypoxia [Unknown]
  - Arthralgia [Unknown]
  - Cough [Unknown]
  - Vision blurred [Unknown]
  - Abdominal pain upper [Unknown]
  - Blood calcium decreased [Unknown]
  - Bone pain [Unknown]
  - Muscle spasms [Unknown]
  - Dyspnoea [Unknown]
  - Neuropathy peripheral [Not Recovered/Not Resolved]
  - Diarrhoea [Recovering/Resolving]
  - Nasopharyngitis [Unknown]
  - Injury [Unknown]
  - Pancreatic cyst [Unknown]
  - Hepatic steatosis [Unknown]
  - Swelling face [Unknown]
  - Activities of daily living impaired [Unknown]
  - Back pain [Unknown]
  - Hypoaesthesia [Recovering/Resolving]
  - Paraesthesia [Recovering/Resolving]
  - Fatigue [Unknown]
  - Intervertebral disc degeneration [Unknown]
  - Bone lesion [Unknown]
  - Osteoarthritis [Unknown]
  - Lung disorder [Unknown]
  - Nasal congestion [Unknown]
  - Productive cough [Unknown]
  - Metastases to lung [Unknown]
  - Pain in jaw [Unknown]
  - Musculoskeletal pain [Unknown]
  - Neck pain [Unknown]
  - Electrocardiogram T wave abnormal [Unknown]
  - Atelectasis [Unknown]
  - Road traffic accident [Unknown]
  - Tooth deposit [Unknown]
  - Mouth haemorrhage [Unknown]
  - Contusion [Unknown]
  - Excoriation [Unknown]
  - Hypertension [Unknown]
  - Epistaxis [Unknown]
  - Oedema peripheral [Unknown]
  - Insomnia [Unknown]
  - Actinic keratosis [Unknown]
  - Hyperlipidaemia [Unknown]
  - Neoplasm [Unknown]
